FAERS Safety Report 8111613-8 (Version None)
Quarter: 2012Q1

REPORT INFORMATION
  Report Type: 
  Country: None (occurrence: None)
  Receive Date: 20120202
  Receipt Date: 20120202
  Transmission Date: 20120608
  Serious: Yes (Hospitalization)
  Sender: FDA-Public Use
  Company Number: None

PATIENT
  Sex: Male
  Weight: 70 kg

DRUGS (1)
  1. BEVACIZUMAB (RHUMAB VEGF) [Suspect]
     Dosage: 305 MG
     Dates: end: 20120116

REACTIONS (5)
  - PHARYNGEAL ULCERATION [None]
  - DYSPHAGIA [None]
  - MOUTH ULCERATION [None]
  - APHAGIA [None]
  - OESOPHAGITIS [None]
